FAERS Safety Report 24041821 (Version 1)
Quarter: 2024Q3

REPORT INFORMATION
  Report Type: Spontaneous
  Country: CN (occurrence: CN)
  Receive Date: 20240702
  Receipt Date: 20240702
  Transmission Date: 20241017
  Serious: Yes (Other)
  Sender: BAXTER
  Company Number: None

PATIENT
  Age: 52 Year
  Sex: Female
  Weight: 85 kg

DRUGS (6)
  1. CYCLOPHOSPHAMIDE [Suspect]
     Active Substance: CYCLOPHOSPHAMIDE
     Indication: Marginal zone lymphoma
     Dosage: 1395 MG, ONE TIME IN ONE DAY, D1, DILUTED WITH 100 ML OF 0.9% SODIUM CHLORIDE
     Route: 041
     Dates: start: 20240507, end: 20240507
  2. SODIUM CHLORIDE [Suspect]
     Active Substance: SODIUM CHLORIDE
     Indication: Medication dilution
     Dosage: (0.9%) 100 ML, ONE TIME IN ONE DAY, D1, USED TO DILUTE 1395 MG OF CYCLOPHOSPHAMIDE
     Route: 041
     Dates: start: 20240507, end: 20240507
  3. SODIUM CHLORIDE [Suspect]
     Active Substance: SODIUM CHLORIDE
     Dosage: (0.9%) 690 ML, ONE TIME IN ONE DAY, D0, USED TO DILUTE 690 MG OF RITUXIMAB
     Route: 041
     Dates: start: 20240506, end: 20240506
  4. DEXTROSE [Suspect]
     Active Substance: DEXTROSE\DEXTROSE MONOHYDRATE
     Indication: Medication dilution
     Dosage: (5%) 100 ML, ONE TIME IN ONE DAY, D1, USED TO DILUTE 90 MG OF DOXORUBICIN HYDROCHLORIDE
     Route: 041
     Dates: start: 20240507, end: 20240507
  5. RITUXIMAB [Suspect]
     Active Substance: RITUXIMAB
     Indication: Marginal zone lymphoma
     Dosage: 690 MG, ONE TIME IN ONE DAY, D0, DILUTED WITH 690 ML OF 0.9% SODIUM CHLORIDE
     Route: 041
     Dates: start: 20240506, end: 20240506
  6. DOXORUBICIN HYDROCHLORIDE [Suspect]
     Active Substance: DOXORUBICIN HYDROCHLORIDE
     Indication: Marginal zone lymphoma
     Dosage: 90 MG, ONE TIME IN ONE DAY, D1, DILUTED WITH 100 ML OF 5% GLUCOSE
     Route: 041
     Dates: start: 20240507, end: 20240507

REACTIONS (2)
  - Liver injury [Unknown]
  - Hepatic function abnormal [Unknown]

NARRATIVE: CASE EVENT DATE: 20240527
